FAERS Safety Report 15080467 (Version 3)
Quarter: 2018Q3

REPORT INFORMATION
  Report Type: Report from Study
  Country: BR (occurrence: BR)
  Receive Date: 20180628
  Receipt Date: 20180730
  Transmission Date: 20181010
  Serious: Yes (Hospitalization)
  Sender: FDA-Public Use
  Company Number: BR-BIOGEN-2018BI00601180

PATIENT
  Age: 47 Year
  Sex: Male

DRUGS (2)
  1. AVONEX [Suspect]
     Active Substance: INTERFERON BETA-1A
     Route: 065
     Dates: end: 20180708
  2. AVONEX [Suspect]
     Active Substance: INTERFERON BETA-1A
     Indication: MULTIPLE SCLEROSIS
     Route: 030
     Dates: start: 2013, end: 201805

REACTIONS (7)
  - Asthenia [Unknown]
  - Gait disturbance [Recovered/Resolved]
  - Multiple sclerosis [Not Recovered/Not Resolved]
  - Anxiety [Recovered/Resolved]
  - Treatment failure [Unknown]
  - Pain in extremity [Recovered/Resolved]
  - Secondary progressive multiple sclerosis [Recovered/Resolved with Sequelae]

NARRATIVE: CASE EVENT DATE: 20180510
